FAERS Safety Report 17849903 (Version 2)
Quarter: 2020Q2

REPORT INFORMATION
  Report Type: Spontaneous
  Country: PT (occurrence: PT)
  Receive Date: 20200602
  Receipt Date: 20200606
  Transmission Date: 20200714
  Serious: Yes (Hospitalization, Other)
  Sender: FDA-Public Use
  Company Number: PT-ACCORD-181881

PATIENT
  Sex: Male

DRUGS (5)
  1. MEMANTINE HYDROCHLORIDE. [Suspect]
     Active Substance: MEMANTINE HYDROCHLORIDE
     Indication: DEMENTIA ALZHEIMER^S TYPE
  2. ESCITALOPRAM [Suspect]
     Active Substance: ESCITALOPRAM OXALATE
     Indication: ANXIETY DISORDER
  3. DARIFENACIN. [Suspect]
     Active Substance: DARIFENACIN
     Indication: PRODUCT USED FOR UNKNOWN INDICATION
     Dates: start: 201603
  4. DONEPEZIL/DONEPEZIL HYDROCHLORIDE [Suspect]
     Active Substance: DONEPEZIL HYDROCHLORIDE
     Indication: DEMENTIA ALZHEIMER^S TYPE
  5. ALFUZOSIN [Suspect]
     Active Substance: ALFUZOSIN
     Indication: BENIGN PROSTATIC HYPERPLASIA

REACTIONS (16)
  - Hyperphagia [Recovered/Resolved]
  - Pollakiuria [Recovered/Resolved]
  - Prostatomegaly [Unknown]
  - Ketonuria [Recovered/Resolved]
  - Therapeutic response decreased [Unknown]
  - Delirium [Recovered/Resolved]
  - Gastrointestinal disorder [Unknown]
  - Weight decreased [Recovered/Resolved]
  - Proteinuria [Recovered/Resolved]
  - Polydipsia [Recovered/Resolved]
  - Urinary incontinence [Unknown]
  - Dry mouth [Unknown]
  - Hyperglycaemic hyperosmolar nonketotic syndrome [Recovered/Resolved]
  - Hydronephrosis [Unknown]
  - Acute kidney injury [Recovered/Resolved]
  - Hypernatraemia [Recovered/Resolved]

NARRATIVE: CASE EVENT DATE: 2016
